FAERS Safety Report 4761177-1 (Version None)
Quarter: 2005Q3

REPORT INFORMATION
  Report Type: 
  Country: None (occurrence: None)
  Receive Date: 20050906
  Receipt Date: 20050825
  Transmission Date: 20060218
  Serious: Yes (Other)
  Sender: FDA-Public Use
  Company Number: MW-BOEHRINGER INGELHEIM PHARMACEUTICALS, INC.-2005-DE-03402GD

PATIENT
  Age: 30 Year
  Sex: Female

DRUGS (4)
  1. NEVIRAPINE [Suspect]
     Indication: HIV TEST POSITIVE
     Dates: start: 20031101
  2. D4T [Suspect]
     Indication: HIV TEST POSITIVE
     Dates: start: 20031101
  3. 3TC [Suspect]
     Indication: HIV TEST POSITIVE
     Dates: start: 20031101
  4. BLEOMYCIN [Suspect]
     Indication: KAPOSI'S SARCOMA

REACTIONS (2)
  - CONDITION AGGRAVATED [None]
  - DRUG INEFFECTIVE [None]
